FAERS Safety Report 12789997 (Version 1)
Quarter: 2016Q3

REPORT INFORMATION
  Report Type: Report from Study
  Country: US (occurrence: US)
  Receive Date: 20160928
  Receipt Date: 20160928
  Transmission Date: 20161109
  Serious: Yes (Hospitalization, Other)
  Sender: FDA-Public Use
  Company Number: US-BIOGEN-2016BI00297722

PATIENT
  Sex: Female

DRUGS (1)
  1. TYSABRI [Suspect]
     Active Substance: NATALIZUMAB
     Indication: MULTIPLE SCLEROSIS
     Dosage: INFUSED OVER 1 HOUR;18 TOTAL DOSES
     Route: 042
     Dates: start: 20140625, end: 20151021

REACTIONS (3)
  - Opportunistic infection [Unknown]
  - Progressive multifocal leukoencephalopathy [Unknown]
  - Neoplasm malignant [Unknown]
